FAERS Safety Report 7883421-4 (Version None)
Quarter: 2011Q4

REPORT INFORMATION
  Report Type: 
  Country: None (occurrence: None)
  Receive Date: 20111102
  Receipt Date: 20111024
  Transmission Date: 20120403
  Serious: Yes (Other)
  Sender: FDA-Public Use
  Company Number: FR-JNJFOC-20110904375

PATIENT
  Sex: Female
  Weight: 40.6 kg

DRUGS (4)
  1. REMICADE [Suspect]
     Indication: CROHN'S DISEASE
     Route: 042
     Dates: start: 20090123
  2. ANTIBIOTICS [Concomitant]
     Indication: CROHN'S DISEASE
  3. PREDNISONE [Concomitant]
  4. AZATHIOPRINE [Concomitant]

REACTIONS (2)
  - PROCTALGIA [None]
  - RECTAL DISCHARGE [None]
